FAERS Safety Report 5483507-8 (Version None)
Quarter: 2007Q4

REPORT INFORMATION
  Report Type: 
  Country: None (occurrence: None)
  Receive Date: 20071009
  Receipt Date: 20070924
  Transmission Date: 20080405
  Serious: Yes (Hospitalization)
  Sender: FDA-Public Use
  Company Number: 2007S1007750

PATIENT
  Age: 74 Year
  Sex: Female
  Weight: 52.1637 kg

DRUGS (6)
  1. FENTANYL T [Suspect]
     Indication: BACK PAIN
     Dosage: 50 UG/HR; EVERY 3 DAYS; TRANSDERMAL
     Route: 062
     Dates: start: 20050101, end: 20070801
  2. FENTANYL T [Suspect]
     Indication: MIGRAINE
     Dosage: 50 UG/HR; EVERY 3 DAYS; TRANSDERMAL
     Route: 062
     Dates: start: 20050101, end: 20070801
  3. OXYCODONE HCL [Concomitant]
  4. LIPITOR [Concomitant]
  5. LISINOPRIL [Concomitant]
  6. AMITRIPTYLINE HYDROCHLORIDE [Concomitant]

REACTIONS (7)
  - ABNORMAL BEHAVIOUR [None]
  - DEPRESSED LEVEL OF CONSCIOUSNESS [None]
  - FALL [None]
  - HEAD INJURY [None]
  - MOUTH INJURY [None]
  - OVERDOSE [None]
  - PNEUMONIA BACTERIAL [None]
